FAERS Safety Report 24056318 (Version 1)
Quarter: 2024Q3

REPORT INFORMATION
  Report Type: Spontaneous
  Country: BR (occurrence: BR)
  Receive Date: 20240705
  Receipt Date: 20240705
  Transmission Date: 20241017
  Serious: Yes (Other)
  Sender: CURRAX PHARMACEUTICALS
  Company Number: BR-NALPROPION PHARMACEUTICALS INC.-BR-2024CUR003230

PATIENT
  Sex: Female

DRUGS (1)
  1. CONTRAVE [Suspect]
     Active Substance: BUPROPION HYDROCHLORIDE\NALTREXONE HYDROCHLORIDE
     Indication: Weight increased
     Dosage: 98.0 MILLIGRAM(S) (98 MILLIGRAM(S), 1 IN 1 DAY)
     Route: 048

REACTIONS (8)
  - Chest discomfort [Unknown]
  - Headache [Recovering/Resolving]
  - Dizziness [Unknown]
  - Tremor [Recovering/Resolving]
  - Nausea [Recovering/Resolving]
  - Daydreaming [Recovering/Resolving]
  - Chest pain [Recovering/Resolving]
  - Vision blurred [Recovering/Resolving]
